FAERS Safety Report 10157824 (Version 1)
Quarter: 2014Q2

REPORT INFORMATION
  Report Type: Spontaneous
  Country: US (occurrence: US)
  Receive Date: 20140507
  Receipt Date: 20140507
  Transmission Date: 20141212
  Serious: Yes (Hospitalization, Other)
  Sender: FDA-Public Use
  Company Number: US-ASTELLAS-2014US004676

PATIENT
  Age: 62 Year
  Sex: Female

DRUGS (3)
  1. TARCEVA [Suspect]
     Indication: LUNG NEOPLASM MALIGNANT
     Route: 048
     Dates: start: 20131127
  2. FERROUS SULPHATE                   /00023503/ [Concomitant]
     Indication: PRODUCT USED FOR UNKNOWN INDICATION
     Route: 065
  3. PROTANDIM [Concomitant]
     Indication: DUMPING SYNDROME
     Dosage: UNK, UNKNOWN FREQ.
     Route: 065

REACTIONS (13)
  - Squamous cell carcinoma [Unknown]
  - Dehydration [Not Recovered/Not Resolved]
  - Alopecia [Not Recovered/Not Resolved]
  - Fungal skin infection [Unknown]
  - Nasal mucosal disorder [Recovered/Resolved]
  - Gait disturbance [Recovered/Resolved]
  - Malaise [Not Recovered/Not Resolved]
  - Rash [Not Recovered/Not Resolved]
  - Onychomadesis [Not Recovered/Not Resolved]
  - Nail disorder [Not Recovered/Not Resolved]
  - Skin fissures [Recovered/Resolved]
  - Diarrhoea [Not Recovered/Not Resolved]
  - Pruritus [Not Recovered/Not Resolved]
